FAERS Safety Report 17401511 (Version 1)
Quarter: 2020Q1

REPORT INFORMATION
  Report Type: Spontaneous
  Country: US (occurrence: US)
  Receive Date: 20200211
  Receipt Date: 20200211
  Transmission Date: 20200409
  Serious: Yes (Hospitalization)
  Sender: FDA-Public Use
  Company Number: US-ASTELLAS-2020US002939

PATIENT
  Age: 35 Year
  Sex: Female

DRUGS (4)
  1. AMBISOME [Suspect]
     Active Substance: AMPHOTERICIN B
     Indication: EMPYEMA
  2. AMBISOME [Suspect]
     Active Substance: AMPHOTERICIN B
     Indication: PNEUMONIA
  3. AMBISOME [Suspect]
     Active Substance: AMPHOTERICIN B
     Indication: ABSCESS
     Route: 042
  4. AMBISOME [Suspect]
     Active Substance: AMPHOTERICIN B
     Indication: SEPSIS
     Route: 042
     Dates: start: 20200117, end: 20200123

REACTIONS (3)
  - Intentional dose omission [Unknown]
  - Product use in unapproved indication [Unknown]
  - Wound [Unknown]

NARRATIVE: CASE EVENT DATE: 20200117
